FAERS Safety Report 15293897 (Version 1)
Quarter: 2018Q3

REPORT INFORMATION
  Report Type: Spontaneous
  Country: BR (occurrence: BR)
  Receive Date: 20180820
  Receipt Date: 20180820
  Transmission Date: 20181010
  Serious: Yes (Hospitalization, Other)
  Sender: FDA-Public Use
  Company Number: BR-AMGEN-BRASP2018112737

PATIENT
  Age: 74 Year
  Sex: Female
  Weight: 68 kg

DRUGS (15)
  1. ATENOLOL. [Concomitant]
     Active Substance: ATENOLOL
     Indication: HYPERTENSION
     Dosage: UNK
  2. PREDNISONE. [Concomitant]
     Active Substance: PREDNISONE
     Indication: DIFFUSE LARGE B-CELL LYMPHOMA
  3. FAULDVINCRI [Concomitant]
     Active Substance: VINCRISTINE SULFATE
     Indication: NON-HODGKIN^S LYMPHOMA
     Dosage: 2 MG, CYCLICAL (21 DAY, 10 MIN OF INFUSION)
     Route: 042
     Dates: start: 20171123, end: 20180315
  4. FAULDOXO [Concomitant]
     Active Substance: DOXORUBICIN HYDROCHLORIDE
     Indication: NON-HODGKIN^S LYMPHOMA
     Dosage: 8415 MG, CYCLICAL (21 DAY, 10 MIN OF INFUSION)
     Route: 042
     Dates: start: 20171123
  5. DIPYRONE [Concomitant]
     Active Substance: DIPYRONE
     Dosage: UNK
  6. LOSARTAN. [Concomitant]
     Active Substance: LOSARTAN
     Indication: HYPERTENSION
     Dosage: UNK
  7. PREDNISONE. [Concomitant]
     Active Substance: PREDNISONE
     Indication: NON-HODGKIN^S LYMPHOMA
     Dosage: UNK UNK, CYCLICAL (21 DAYS)
     Dates: start: 20171123, end: 20180315
  8. MABTHERA [Concomitant]
     Active Substance: RITUXIMAB
     Indication: NON-HODGKIN^S LYMPHOMA
     Dosage: 1400 MG, CYCLICAL (21 DAY, 5 MIN OF INFUSION)
     Route: 058
     Dates: start: 20171123, end: 20180315
  9. MABTHERA [Concomitant]
     Active Substance: RITUXIMAB
     Indication: DIFFUSE LARGE B-CELL LYMPHOMA
  10. FAULDVINCRI [Concomitant]
     Active Substance: VINCRISTINE SULFATE
     Indication: DIFFUSE LARGE B-CELL LYMPHOMA
  11. FAULDOXO [Concomitant]
     Active Substance: DOXORUBICIN HYDROCHLORIDE
     Indication: DIFFUSE LARGE B-CELL LYMPHOMA
     Dosage: UNK (50% DOSE REDUCTION)
     Route: 042
     Dates: start: 20180315, end: 20180315
  12. GENUXAL [Concomitant]
     Active Substance: CYCLOPHOSPHAMIDE
     Indication: NON-HODGKIN^S LYMPHOMA
     Dosage: 1262.25 MG, CYCLICAL (21 DAY, 45 MIN OF INFUSION)
     Route: 042
     Dates: start: 20171123, end: 20180315
  13. GENUXAL [Concomitant]
     Active Substance: CYCLOPHOSPHAMIDE
     Indication: DIFFUSE LARGE B-CELL LYMPHOMA
  14. PRIMID [Concomitant]
     Dosage: UNK
  15. NEULASTIM [Suspect]
     Active Substance: PEGFILGRASTIM
     Indication: PRODUCT USED FOR UNKNOWN INDICATION
     Dosage: 6 MG, CYCLICAL (AFTER CHEMO ON DAY 2)
     Route: 058
     Dates: start: 20171214, end: 20180316

REACTIONS (1)
  - Febrile neutropenia [Recovered/Resolved]

NARRATIVE: CASE EVENT DATE: 20180301
